FAERS Safety Report 22123534 (Version 2)
Quarter: 2023Q2

REPORT INFORMATION
  Report Type: Spontaneous
  Country: DE (occurrence: DE)
  Receive Date: 20230322
  Receipt Date: 20230418
  Transmission Date: 20230722
  Serious: Yes (Other)
  Sender: FDA-Public Use
  Company Number: DE-002147023-NVSC2023DE062868

PATIENT
  Age: 36 Year
  Sex: Female

DRUGS (2)
  1. KESIMPTA [Suspect]
     Active Substance: OFATUMUMAB
     Indication: Relapsing multiple sclerosis
     Dosage: 1 DOSAGE FORM, Q4W
     Route: 058
     Dates: start: 20220614
  2. CHOLECALCIFEROL [Concomitant]
     Active Substance: CHOLECALCIFEROL
     Indication: Vitamin D deficiency
     Dosage: UNK, QW
     Route: 048
     Dates: start: 20220408

REACTIONS (3)
  - Platelet count decreased [Recovering/Resolving]
  - Bronchitis [Recovered/Resolved]
  - Platelet count decreased [Recovered/Resolved]

NARRATIVE: CASE EVENT DATE: 20220101
